FAERS Safety Report 8314401-2 (Version None)
Quarter: 2012Q2

REPORT INFORMATION
  Report Type: 
  Country: None (occurrence: None)
  Receive Date: 20120426
  Receipt Date: 20120419
  Transmission Date: 20120825
  Serious: Yes (Hospitalization)
  Sender: FDA-Public Use
  Company Number: US-PFIZER INC-2012055552

PATIENT
  Sex: Female
  Weight: 67.12 kg

DRUGS (3)
  1. XANAX [Suspect]
     Indication: CARDIAC DISORDER
  2. XANAX [Suspect]
     Indication: STRESS
  3. XANAX [Suspect]
     Indication: ANXIETY
     Dosage: 1 MG, 3X/DAY

REACTIONS (1)
  - CARDIAC DISORDER [None]
